FAERS Safety Report 9334034 (Version 1)
Quarter: 2013Q2

REPORT INFORMATION
  Report Type: Spontaneous
  Country: US (occurrence: US)
  Receive Date: 20130606
  Receipt Date: 20130606
  Transmission Date: 20140414
  Serious: No
  Sender: FDA-Public Use
  Company Number: US-AMGEN-USASP2013014963

PATIENT
  Sex: Female

DRUGS (1)
  1. PROLIA [Suspect]
     Indication: OSTEOPOROSIS POSTMENOPAUSAL
     Dosage: 60 MG, Q6WK
     Dates: start: 201110

REACTIONS (4)
  - Back pain [Unknown]
  - Connective tissue disorder [Unknown]
  - Musculoskeletal stiffness [Recovered/Resolved]
  - Pain in extremity [Unknown]
